FAERS Safety Report 5134729-7 (Version None)
Quarter: 2006Q4

REPORT INFORMATION
  Report Type: 
  Country: None (occurrence: None)
  Receive Date: 20061019
  Receipt Date: 20061002
  Transmission Date: 20070319
  Serious: Yes (Hospitalization)
  Sender: FDA-Public Use
  Company Number: 20063251

PATIENT
  Sex: Male

DRUGS (1)
  1. LIORESAL [Suspect]
     Indication: MUSCLE SPASTICITY
     Dosage: MCG, DAILY, INTRATHECAL
     Route: 037

REACTIONS (6)
  - DEVICE FAILURE [None]
  - HYPERHIDROSIS [None]
  - HYPERTONIA [None]
  - MUSCULOSKELETAL STIFFNESS [None]
  - RESPIRATORY DISTRESS [None]
  - TACHYCARDIA [None]
